FAERS Safety Report 10196076 (Version 1)
Quarter: 2014Q2

REPORT INFORMATION
  Report Type: Spontaneous
  Country: US (occurrence: US)
  Receive Date: 20140527
  Receipt Date: 20140527
  Transmission Date: 20141212
  Serious: No
  Sender: FDA-Public Use
  Company Number: US-PFIZER INC-2014142334

PATIENT
  Age: 45 Year
  Sex: Female
  Weight: 95.69 kg

DRUGS (3)
  1. LYRICA [Suspect]
     Indication: FIBROMYALGIA
     Dosage: 300 MG, 2X/DAY
     Route: 048
     Dates: end: 201405
  2. FLEXERIL [Concomitant]
     Indication: MUSCLE RELAXANT THERAPY
     Dosage: 100 MG, 2X/DAY
  3. PLAQUENIL [Concomitant]
     Indication: ARTHRALGIA
     Dosage: 200 MG, 2X/DAY

REACTIONS (1)
  - Asthenia [Unknown]
